FAERS Safety Report 19498680 (Version 2)
Quarter: 2021Q3

REPORT INFORMATION
  Report Type: Spontaneous
  Country: US (occurrence: US)
  Receive Date: 20210706
  Receipt Date: 20210726
  Transmission Date: 20211014
  Serious: Yes (Hospitalization, Other)
  Sender: FDA-Public Use
  Company Number: US-ALLERGAN-2124652US

PATIENT
  Sex: Female

DRUGS (2)
  1. TESTOSTERONE. [Suspect]
     Active Substance: TESTOSTERONE
     Indication: SUPPLEMENTATION THERAPY
     Route: 048
  2. TESTOSTERONE UNK [Suspect]
     Active Substance: TESTOSTERONE
     Indication: SUPPLEMENTATION THERAPY

REACTIONS (6)
  - Carotid arteriosclerosis [Unknown]
  - Aneurysm [Unknown]
  - Off label use [Unknown]
  - Left ventricular hypertrophy [Unknown]
  - Hypertensive emergency [Recovered/Resolved]
  - Renal artery fibromuscular dysplasia [Recovering/Resolving]
